FAERS Safety Report 13942506 (Version 3)
Quarter: 2017Q4

REPORT INFORMATION
  Report Type: Report from Study
  Country: CA (occurrence: CA)
  Receive Date: 20170907
  Receipt Date: 20171017
  Transmission Date: 20180320
  Serious: Yes (Hospitalization, Other)
  Sender: FDA-Public Use
  Company Number: CA-JNJFOC-20170904452

PATIENT
  Age: 47 Year
  Sex: Female
  Weight: 124 kg

DRUGS (4)
  1. REMICADE [Suspect]
     Active Substance: INFLIXIMAB
     Indication: COLITIS ULCERATIVE
     Dosage: INFUSION 3
     Route: 042
     Dates: start: 20170914
  2. REMICADE [Suspect]
     Active Substance: INFLIXIMAB
     Indication: COLITIS ULCERATIVE
     Route: 042
     Dates: start: 20170902
  3. REMICADE [Suspect]
     Active Substance: INFLIXIMAB
     Indication: COLITIS ULCERATIVE
     Route: 042
     Dates: start: 20171015
  4. REMICADE [Suspect]
     Active Substance: INFLIXIMAB
     Indication: COLITIS ULCERATIVE
     Dosage: STRENGTH = 100 MG??PREVIOUSLY REPORTED AS 628 MG.
     Route: 042
     Dates: start: 20170830

REACTIONS (7)
  - Atrial fibrillation [Recovering/Resolving]
  - Bronchospasm [Recovering/Resolving]
  - Off label use [Unknown]
  - Product use issue [Unknown]
  - Nasal discharge discolouration [Unknown]
  - Haematochezia [Unknown]
  - Nasal congestion [Recovering/Resolving]

NARRATIVE: CASE EVENT DATE: 2017
